FAERS Safety Report 13298154 (Version 1)
Quarter: 2017Q1

REPORT INFORMATION
  Report Type: Spontaneous
  Country: None (occurrence: US)
  Receive Date: 20170304
  Receipt Date: 20170304
  Transmission Date: 20170428
  Serious: Yes (Hospitalization)
  Sender: FDA-Public Use
  Company Number: None

PATIENT
  Age: 71 Year
  Sex: Male
  Weight: 84.2 kg

DRUGS (2)
  1. LEUPROLIDE ACETATE. [Suspect]
     Active Substance: LEUPROLIDE ACETATE
     Dates: end: 20170104
  2. CASODEX [Suspect]
     Active Substance: BICALUTAMIDE
     Dates: end: 20170131

REACTIONS (5)
  - Spinal column stenosis [None]
  - Hypoaesthesia [None]
  - Pain [None]
  - Paraesthesia [None]
  - Gait disturbance [None]

NARRATIVE: CASE EVENT DATE: 20170201
